FAERS Safety Report 17875056 (Version 1)
Quarter: 2020Q2

REPORT INFORMATION
  Report Type: Spontaneous
  Country: US (occurrence: US)
  Receive Date: 20200608
  Receipt Date: 20200608
  Transmission Date: 20200714
  Serious: Yes (Hospitalization)
  Sender: FDA-Public Use
  Company Number: None

PATIENT
  Sex: Female

DRUGS (3)
  1. SILDENAFIL 20MG TAB [Suspect]
     Active Substance: SILDENAFIL
     Indication: PULMONARY ARTERIAL HYPERTENSION
     Route: 048
     Dates: start: 20190313
  2. NYSTATIN. [Concomitant]
     Active Substance: NYSTATIN
  3. RIVASTIGMINE. [Concomitant]
     Active Substance: RIVASTIGMINE

REACTIONS (1)
  - Cardiac failure [None]
